FAERS Safety Report 4805924-9 (Version None)
Quarter: 2005Q4

REPORT INFORMATION
  Report Type: 
  Country: None (occurrence: None)
  Receive Date: 20051019
  Receipt Date: 20051003
  Transmission Date: 20060501
  Serious: Yes (Hospitalization, Other)
  Sender: FDA-Public Use
  Company Number: USA0509108459

PATIENT
  Age: 71 Year
  Sex: Female
  Weight: 49 kg

DRUGS (21)
  1. FORTEO [Suspect]
     Indication: OSTEOPOROSIS
     Dosage: 20 UG/1 DAY
     Dates: start: 20050907
  2. ALPHAGAN [Concomitant]
  3. PREDNISONE [Concomitant]
  4. MIACALCIN [Concomitant]
  5. MEGACE [Concomitant]
  6. ZANAFLEX [Concomitant]
  7. COMBIVENT [Concomitant]
  8. MULTI-VITAMIN [Concomitant]
  9. CALCIUM /N/A/ [Concomitant]
  10. METHADONE [Concomitant]
  11. PROTONIX [Concomitant]
  12. CITRICAL (CALCIUM CARBONATE) [Concomitant]
  13. DICYCLOMINE [Concomitant]
  14. MUCINEX (GUAIFENESIN) [Concomitant]
  15. AMBIEN [Concomitant]
  16. ASPIRIN [Concomitant]
  17. LIDOCAINE [Concomitant]
  18. NASACORT [Concomitant]
  19. FLEXERIL [Concomitant]
  20. ACTONEL [Concomitant]
  21. MIACALCIN [Concomitant]

REACTIONS (6)
  - ABDOMINAL DISTENSION [None]
  - BLOOD PRESSURE INCREASED [None]
  - FLUSHING [None]
  - HEADACHE [None]
  - PHARMACEUTICAL PRODUCT COMPLAINT [None]
  - SPINAL COMPRESSION FRACTURE [None]
